FAERS Safety Report 25192289 (Version 1)
Quarter: 2025Q2

REPORT INFORMATION
  Report Type: Spontaneous
  Country: US (occurrence: None)
  Receive Date: 20250414
  Receipt Date: 20250414
  Transmission Date: 20250717
  Serious: Yes (Disabling, Other)
  Sender: FDA-CTU
  Company Number: None

PATIENT
  Age: 31 Year
  Sex: Female
  Weight: 87.75 kg

DRUGS (2)
  1. METRONIDAZOLE [Suspect]
     Active Substance: METRONIDAZOLE
     Indication: Helicobacter infection
     Dosage: FREQUENCY : EVERY 4 HOURS;?
     Route: 048
     Dates: start: 20250110, end: 20250124
  2. TETRACYCLINE [Suspect]
     Active Substance: TETRACYCLINE

REACTIONS (12)
  - Vitreous floaters [None]
  - Eye injury [None]
  - Nervous system disorder [None]
  - Burning sensation [None]
  - Chest discomfort [None]
  - Burning feet syndrome [None]
  - Blood thyroid stimulating hormone abnormal [None]
  - Ear pain [None]
  - Pain in jaw [None]
  - Chest pain [None]
  - Palpitations [None]
  - Heart rate increased [None]

NARRATIVE: CASE EVENT DATE: 20250110
